FAERS Safety Report 7791855 (Version 7)
Quarter: 2014Q3

REPORT INFORMATION
  Report Type: Report from Study
  Country: US (occurrence: US)
  Receive Date: 20110131
  Receipt Date: 20140826
  Transmission Date: 20150326
  Serious: Yes (Hospitalization)
  Sender: FDA-Public Use
  Company Number: US-BIOGENIDEC-2010BI045099

PATIENT
  Age: 49 Year
  Sex: Female

DRUGS (1)
  1. TYSABRI [Suspect]
     Active Substance: NATALIZUMAB
     Indication: MULTIPLE SCLEROSIS
     Route: 042
     Dates: start: 20061002, end: 20101208

REACTIONS (4)
  - Central nervous system lesion [Unknown]
  - Cognitive disorder [Recovered/Resolved]
  - JC virus test positive [Unknown]
  - Personality change [Recovered/Resolved]

NARRATIVE: CASE EVENT DATE: 201012
